FAERS Safety Report 14008420 (Version 1)
Quarter: 2017Q3

REPORT INFORMATION
  Report Type: Spontaneous
  Country: US (occurrence: US)
  Receive Date: 20170925
  Receipt Date: 20170925
  Transmission Date: 20171128
  Serious: Yes (Disabling)
  Sender: FDA-Public Use
  Company Number: None

PATIENT
  Sex: Male
  Weight: 18.45 kg

DRUGS (2)
  1. BABY TEETHING (HYLAND HOMEOPATHIC) [Suspect]
     Active Substance: HOMEOPATHICS
     Indication: TEETHING
     Dosage: OTHER STRENGTH:HOMEOPATHIC;QUANTITY:250 TABLET(S);?
     Route: 048
     Dates: start: 20121001, end: 20130401
  2. ZOFRAN [Concomitant]
     Active Substance: ONDANSETRON HYDROCHLORIDE

REACTIONS (6)
  - Somnolence [None]
  - Mydriasis [None]
  - Autism spectrum disorder [None]
  - Pyrexia [None]
  - Intellectual disability [None]
  - Cough [None]

NARRATIVE: CASE EVENT DATE: 20130401
